FAERS Safety Report 9173338 (Version 1)
Quarter: 2013Q1

REPORT INFORMATION
  Report Type: Spontaneous
  Country: US (occurrence: None)
  Receive Date: 20130313
  Receipt Date: 20130313
  Transmission Date: 20140127
  Serious: Yes (Other)
  Sender: FDA-Public Use
  Company Number: AUR-APL-2013-02094

PATIENT
  Age: 65 Year
  Sex: Female
  Weight: 39.9 kg

DRUGS (4)
  1. LISINOPRIL (LISINOPRIL) [Suspect]
     Indication: HYPERTENSION
  2. NIFEDIPINE [Suspect]
     Indication: HYPERTENSION
  3. CENTRUM SILVER [Suspect]
     Indication: VITAMIN SUPPLEMENTATION
     Route: 048
  4. LOVASTATIN (LOVASTATIN) [Concomitant]

REACTIONS (1)
  - Choking [None]
